FAERS Safety Report 9556886 (Version 2)
Quarter: 2013Q3

REPORT INFORMATION
  Report Type: Spontaneous
  Country: CN (occurrence: CN)
  Receive Date: 20130926
  Receipt Date: 20130926
  Transmission Date: 20140515
  Serious: Yes (Other)
  Sender: FDA-Public Use
  Company Number: CN-PFIZER INC-2013268769

PATIENT
  Age: 38 Year
  Sex: Female
  Weight: 57 kg

DRUGS (2)
  1. DAUNOBLASTINA [Suspect]
     Indication: ACUTE LEUKAEMIA
     Dosage: 60 MG, ONCE DAILY
     Route: 041
     Dates: start: 20120919, end: 20120921
  2. CYTOSAR [Suspect]
     Indication: ACUTE LEUKAEMIA
     Dosage: 1.5 G, TWICE DAILY
     Route: 041
     Dates: start: 20120919, end: 20120925

REACTIONS (7)
  - Platelet count [Unknown]
  - White blood cell count [Unknown]
  - Diarrhoea [Recovering/Resolving]
  - Mucous membrane disorder [Recovering/Resolving]
  - Nausea [Unknown]
  - Haemoglobin [Unknown]
  - Decreased appetite [Unknown]
